FAERS Safety Report 18063290 (Version 1)
Quarter: 2020Q3

REPORT INFORMATION
  Report Type: Report from Study
  Country: None (occurrence: US)
  Receive Date: 20200723
  Receipt Date: 20200723
  Transmission Date: 20201103
  Serious: Yes (Hospitalization)
  Sender: FDA-Public Use
  Company Number: US-ABBVIE-20K-163-3491552-00

PATIENT
  Sex: Female

DRUGS (1)
  1. ORILISSA [Suspect]
     Active Substance: ELAGOLIX SODIUM
     Indication: PRODUCT USED FOR UNKNOWN INDICATION
     Route: 048

REACTIONS (5)
  - Uterine leiomyoma [Unknown]
  - Uterine atrophy [Unknown]
  - Dysstasia [Recovered/Resolved]
  - Pain [Recovering/Resolving]
  - Gait disturbance [Recovered/Resolved]

NARRATIVE: CASE EVENT DATE: 2020
